FAERS Safety Report 4881107-1 (Version None)
Quarter: 2005Q4

REPORT INFORMATION
  Report Type: 
  Country: None (occurrence: None)
  Receive Date: 20051223
  Receipt Date: 20050908
  Transmission Date: 20060501
  Serious: No
  Sender: FDA-Public Use
  Company Number: 05P-163-0310588-00

PATIENT
  Age: 70 Year
  Sex: Female
  Weight: 78.9259 kg

DRUGS (4)
  1. HUMIRA [Suspect]
     Indication: RHEUMATOID ARTHRITIS
     Dosage: 40 MG, 1 IN 2 WK, SUBCUTANEOUS
     Route: 058
     Dates: start: 20050718
  2. ADVAIR DISKUS 100/50 [Concomitant]
  3. CITALOPRAM HYDROBROMIDE [Concomitant]
  4. VITAMINS [Concomitant]

REACTIONS (5)
  - DRUG INEFFECTIVE [None]
  - JOINT STABILISATION [None]
  - JOINT SWELLING [None]
  - RHEUMATOID NODULE [None]
  - WEIGHT INCREASED [None]
